FAERS Safety Report 4444376-8 (Version None)
Quarter: 2004Q3

REPORT INFORMATION
  Report Type: 
  Country: None (occurrence: None)
  Receive Date: 20040729
  Receipt Date: 20031014
  Transmission Date: 20050211
  Serious: Yes (Death)
  Sender: FDA-Public Use
  Company Number: 2003AP04255

PATIENT
  Age: 24 Year

DRUGS (2)
  1. AMITRIPTYLINE HCL [Suspect]
  2. MONTELUKAST [Suspect]

REACTIONS (1)
  - COMPLETED SUICIDE [None]
